FAERS Safety Report 25199086 (Version 3)
Quarter: 2025Q2

REPORT INFORMATION
  Report Type: Spontaneous
  Country: CN (occurrence: CN)
  Receive Date: 20250415
  Receipt Date: 20250515
  Transmission Date: 20250716
  Serious: Yes (Other)
  Sender: CALLIDITAS THERAPEUTICS AB
  Company Number: CN-EVEREST-20250100056

PATIENT
  Age: 39 Year
  Sex: Male
  Weight: 82 kg

DRUGS (1)
  1. BUDESONIDE [Suspect]
     Active Substance: BUDESONIDE
     Indication: IgA nephropathy
     Route: 050
     Dates: start: 20250108

REACTIONS (12)
  - Protein urine present [Unknown]
  - Inappropriate schedule of product administration [Unknown]
  - Acne [Not Recovered/Not Resolved]
  - Blood bilirubin increased [Recovered/Resolved]
  - Blood bilirubin unconjugated increased [Recovered/Resolved]
  - Blood albumin decreased [Recovered/Resolved]
  - Albumin globulin ratio decreased [Recovered/Resolved]
  - Blood triglycerides increased [Recovered/Resolved]
  - Therapeutic response unexpected [Unknown]
  - Blood pressure increased [Not Recovered/Not Resolved]
  - Face oedema [Unknown]
  - Peripheral swelling [Unknown]

NARRATIVE: CASE EVENT DATE: 20250201
